FAERS Safety Report 14347768 (Version 4)
Quarter: 2018Q1

REPORT INFORMATION
  Report Type: Report from Study
  Country: US (occurrence: US)
  Receive Date: 20180103
  Receipt Date: 20180322
  Transmission Date: 20180509
  Serious: Yes (Hospitalization, Other)
  Sender: FDA-Public Use
  Company Number: US-PFIZER INC-2017495444

PATIENT
  Age: 63 Year
  Sex: Female

DRUGS (5)
  1. IBRANCE [Suspect]
     Active Substance: PALBOCICLIB
     Dosage: 100 MG, DAILY
     Route: 048
     Dates: start: 20171111
  2. COUMADIN [Concomitant]
     Active Substance: WARFARIN SODIUM
     Indication: CEREBROVASCULAR ACCIDENT
     Dosage: UNK
     Dates: end: 20171129
  3. IBRANCE [Suspect]
     Active Substance: PALBOCICLIB
     Dosage: 100 MG, DAILY
     Route: 048
     Dates: start: 20171208
  4. IBRANCE [Suspect]
     Active Substance: PALBOCICLIB
     Indication: BREAST CANCER METASTATIC
     Dosage: 125 MG, DAILY
     Route: 048
     Dates: start: 20171101, end: 20171207
  5. IBRANCE [Suspect]
     Active Substance: PALBOCICLIB
     Dosage: UNK
     Dates: start: 20171129

REACTIONS (13)
  - Abdominal pain [Unknown]
  - Vomiting [Unknown]
  - Fatigue [Unknown]
  - White blood cell count decreased [Unknown]
  - Nausea [Unknown]
  - Intestinal obstruction [Recovered/Resolved]
  - Weight decreased [Unknown]
  - Leukopenia [Unknown]
  - Alopecia [Unknown]
  - Pain [Unknown]
  - Increased appetite [Unknown]
  - Neoplasm progression [Unknown]
  - Weight increased [Unknown]

NARRATIVE: CASE EVENT DATE: 2017
